FAERS Safety Report 5132260-6 (Version None)
Quarter: 2006Q4

REPORT INFORMATION
  Report Type: 
  Country: None (occurrence: None)
  Receive Date: 20061017
  Receipt Date: 20061013
  Transmission Date: 20070319
  Serious: Yes (Other)
  Sender: FDA-Public Use
  Company Number: 06101893

PATIENT
  Age: 86 Year
  Sex: Female

DRUGS (5)
  1. WARFARIN SODIUM [Suspect]
     Indication: EMBOLISM
     Dosage: 5MG, QD, ORAL
     Route: 048
     Dates: start: 20060925, end: 20061002
  2. WARFARIN SODIUM [Suspect]
     Indication: EMBOLISM
     Dosage: 1 MG, QD, ORAL
     Route: 048
     Dates: start: 20060701, end: 20060924
  3. LOPRESSOR [Concomitant]
  4. ZOCOR [Concomitant]
  5. NORVASC [Concomitant]

REACTIONS (4)
  - DRUG DISPENSING ERROR [None]
  - INCORRECT DOSE ADMINISTERED [None]
  - INTERNATIONAL NORMALISED RATIO INCREASED [None]
  - RECTAL HAEMORRHAGE [None]
